FAERS Safety Report 11404858 (Version 1)
Quarter: 2015Q3

REPORT INFORMATION
  Report Type: Spontaneous
  Country: US (occurrence: US)
  Receive Date: 20150821
  Receipt Date: 20150821
  Transmission Date: 20151125
  Serious: No
  Sender: FDA-Public Use
  Company Number: US-BAYER-2015-403822

PATIENT
  Age: 72 Year
  Sex: Female
  Weight: 63.49 kg

DRUGS (1)
  1. CLARITIN-D 24 HOUR [Suspect]
     Active Substance: LORATADINE\PSEUDOEPHEDRINE SULFATE
     Dosage: 1 DF, QD
     Route: 048

REACTIONS (2)
  - Product use issue [None]
  - Insomnia [Recovered/Resolved]

NARRATIVE: CASE EVENT DATE: 20150813
